FAERS Safety Report 22534812 (Version 28)
Quarter: 2024Q3

REPORT INFORMATION
  Report Type: Spontaneous
  Country: AU (occurrence: AU)
  Receive Date: 20230608
  Receipt Date: 20240916
  Transmission Date: 20241016
  Serious: Yes (Hospitalization, Other)
  Sender: MYLAN
  Company Number: AU-MYLANLABS-2023M1059730

PATIENT
  Age: 69 Year
  Sex: Male

DRUGS (7)
  1. CLOZARIL [Suspect]
     Active Substance: CLOZAPINE
     Indication: Schizophrenia
     Dosage: UNK
     Route: 065
     Dates: end: 202009
  2. CLOZARIL [Suspect]
     Active Substance: CLOZAPINE
     Dosage: UNK
     Route: 065
     Dates: start: 20200904, end: 20201125
  3. CLOZARIL [Suspect]
     Active Substance: CLOZAPINE
     Dosage: UNK
     Route: 048
     Dates: start: 20030605
  4. CLOZARIL [Suspect]
     Active Substance: CLOZAPINE
     Dosage: 225 MILLIGRAM
     Route: 048
     Dates: start: 20230626
  5. CLOZARIL [Suspect]
     Active Substance: CLOZAPINE
     Dosage: 250 MILLIGRAM, UNK
     Route: 048
     Dates: start: 20230626
  6. CLOZARIL [Suspect]
     Active Substance: CLOZAPINE
     Dosage: 100 MILLIGRAM
     Route: 048
     Dates: start: 20230626
  7. CLOZARIL [Suspect]
     Active Substance: CLOZAPINE
     Dosage: 200 MILLIGRAM, UNK
     Route: 048
     Dates: start: 20230626

REACTIONS (26)
  - Schizoaffective disorder [Unknown]
  - Mental impairment [Unknown]
  - Suicidal ideation [Unknown]
  - Hypokalaemia [Unknown]
  - Hallucination, auditory [Unknown]
  - Delirium [Unknown]
  - Neutropenia [Recovered/Resolved]
  - Psychotic disorder [Unknown]
  - Leukocytosis [Not Recovered/Not Resolved]
  - Protein total abnormal [Unknown]
  - Persecutory delusion [Unknown]
  - Hypomagnesaemia [Unknown]
  - C-reactive protein increased [Unknown]
  - Blood sodium decreased [Unknown]
  - Blood albumin decreased [Unknown]
  - Blood lactate dehydrogenase increased [Unknown]
  - Blood calcium decreased [Unknown]
  - Haemoglobin decreased [Not Recovered/Not Resolved]
  - Haematocrit decreased [Recovering/Resolving]
  - Red blood cell count decreased [Not Recovered/Not Resolved]
  - Lymphocyte count increased [Recovering/Resolving]
  - Platelet count decreased [Unknown]
  - Monocyte count increased [Unknown]
  - Neutrophil count increased [Recovered/Resolved]
  - Blood osmolarity increased [Unknown]
  - Blood glucose increased [Not Recovered/Not Resolved]

NARRATIVE: CASE EVENT DATE: 20200708
